FAERS Safety Report 5822375-9 (Version None)
Quarter: 2008Q3

REPORT INFORMATION
  Report Type: 
  Country: None (occurrence: None)
  Receive Date: 20080722
  Receipt Date: 20080714
  Transmission Date: 20090109
  Serious: Yes (Death, Other)
  Sender: FDA-Public Use
  Company Number: GXKR2007GB00488

PATIENT
  Age: 74 Year
  Sex: Male

DRUGS (7)
  1. WARFARIN SODIUM [Suspect]
     Dates: start: 20060101
  2. AMISULPRIDE (AMISULPRIDE) [Concomitant]
  3. ATENOLOL [Concomitant]
  4. CARBAMAZEPINE [Concomitant]
  5. LISINOPRIL [Concomitant]
  6. LORAZEPAM [Concomitant]
  7. MIRTAZAPINE [Concomitant]

REACTIONS (4)
  - ATRIAL FIBRILLATION [None]
  - CEREBRAL INFARCTION [None]
  - HAEMORRHAGE INTRACRANIAL [None]
  - INTERNATIONAL NORMALISED RATIO INCREASED [None]
